FAERS Safety Report 18085179 (Version 2)
Quarter: 2020Q3

REPORT INFORMATION
  Report Type: Spontaneous
  Country: PT (occurrence: PT)
  Receive Date: 20200728
  Receipt Date: 20200812
  Transmission Date: 20201103
  Serious: Yes (Other)
  Sender: FDA-Public Use
  Company Number: PT-MYLANLABS-2020M1067895

PATIENT
  Age: 79 Year
  Sex: Male
  Weight: 95 kg

DRUGS (16)
  1. PLAQUINOL [Suspect]
     Active Substance: HYDROXYCHLOROQUINE SULFATE
     Indication: COVID-19 PNEUMONIA
     Dosage: 400 MILLIGRAM, QD(400MG 12/12H EM D0)
     Route: 048
     Dates: start: 20200327
  2. LEVOFLOXACIN. [Concomitant]
     Active Substance: LEVOFLOXACIN
     Dosage: 750 MILLIGRAM, TOTAL
     Route: 042
     Dates: start: 20200327
  3. CEFTRIAXONE. [Concomitant]
     Active Substance: CEFTRIAXONE
     Dosage: 4000 MILLIGRAM, QD
     Route: 042
     Dates: start: 20200327, end: 20200403
  4. RIVASTIGMINE. [Concomitant]
     Active Substance: RIVASTIGMINE
     Dosage: UNK
     Route: 062
  5. IPRATROPIUM BROMIDE. [Concomitant]
     Active Substance: IPRATROPIUM BROMIDE
     Dosage: 2 DOSAGE FORM, QD
     Route: 055
     Dates: start: 20200329, end: 20200402
  6. OMEPRAZOLE. [Concomitant]
     Active Substance: OMEPRAZOLE
     Dosage: 20 MILLIGRAM, QD
     Route: 048
     Dates: start: 20200327, end: 20200329
  7. SIMVASTATIN. [Concomitant]
     Active Substance: SIMVASTATIN
     Dosage: 20 MILLIGRAM AO JANTAR
     Route: 048
  8. QUETIAPINA                         /01270901/ [Concomitant]
     Active Substance: QUETIAPINE
     Dosage: 50 MILLIGRAM, QD (AO PEQUENO?ALMO?O)
     Route: 048
  9. HALOPERIDOL?RATIOPHARM [Concomitant]
     Active Substance: HALOPERIDOL
     Dosage: 5 MILLIGRAM, PRN
     Route: 030
     Dates: start: 20200326
  10. SODIUM CHLORIDE. [Concomitant]
     Active Substance: SODIUM CHLORIDE
     Dosage: 500 MILLILITER, QD(2000 ML EM D0)
     Route: 042
     Dates: start: 20200327, end: 20200402
  11. MEMANTINE. [Concomitant]
     Active Substance: MEMANTINE
     Dosage: 20 MILLIGRAM, QD AO PEQUENO?ALMO?O
     Route: 048
  12. AZITHROMYCIN ANHYDROUS. [Suspect]
     Active Substance: AZITHROMYCIN ANHYDROUS
     Indication: COVID-19 PNEUMONIA
     Dosage: 500 MILLIGRAM, QD(500MG/DAY)
     Route: 048
     Dates: start: 20200327
  13. PARACETAMOL [Concomitant]
     Active Substance: ACETAMINOPHEN
     Dosage: 1000 MILLIGRAM, PRN
     Route: 042
     Dates: start: 20200327
  14. SALBUTAMOL [Concomitant]
     Active Substance: ALBUTEROL
     Dosage: 2 DOSAGE FORM, QD
     Route: 055
     Dates: start: 20200329, end: 20200402
  15. ACETYLSALICYLIC ACID [Concomitant]
     Active Substance: ASPIRIN
     Dosage: 150 MILLIGRAM, QD
     Route: 048
     Dates: start: 20200327
  16. CHLORPROMAZINE. [Concomitant]
     Active Substance: CHLORPROMAZINE
     Dosage: UNK, EM SOS

REACTIONS (5)
  - Aspartate aminotransferase increased [Recovered/Resolved]
  - Gamma-glutamyltransferase increased [Recovered/Resolved]
  - Alanine aminotransferase increased [Recovered/Resolved]
  - Hepatotoxicity [Recovered/Resolved]
  - Off label use [Recovered/Resolved]

NARRATIVE: CASE EVENT DATE: 20200327
